FAERS Safety Report 5257249-8 (Version None)
Quarter: 2007Q1

REPORT INFORMATION
  Report Type: 
  Country: None (occurrence: None)
  Receive Date: 20070307
  Receipt Date: 20070227
  Transmission Date: 20070707
  Serious: Yes (Hospitalization)
  Sender: FDA-Public Use
  Company Number: GB-AVENTIS-200711864GDDC

PATIENT
  Sex: Female

DRUGS (1)
  1. LANTUS [Suspect]
     Dosage: DOSE: 9-11
     Route: 058

REACTIONS (5)
  - BLOOD KETONE BODY INCREASED [None]
  - DEHYDRATION [None]
  - EXPIRED DRUG ADMINISTERED [None]
  - HYPERGLYCAEMIA [None]
  - INFLUENZA [None]
